FAERS Safety Report 6978950-1 (Version None)
Quarter: 2010Q3

REPORT INFORMATION
  Report Type: 
  Country: None (occurrence: None)
  Receive Date: 20100913
  Receipt Date: 20100901
  Transmission Date: 20110219
  Serious: Yes (Congenital Anomaly)
  Sender: FDA-Public Use
  Company Number: US-MERCK-1007USA01934B1

PATIENT

DRUGS (5)
  1. ISENTRESS [Suspect]
     Route: 064
  2. INTELENCE [Suspect]
     Route: 064
  3. PREZISTA [Suspect]
     Route: 064
  4. TRUVADA [Suspect]
     Route: 064
  5. NORVIR [Suspect]
     Route: 064

REACTIONS (2)
  - CONGENITAL ANOMALY [None]
  - DRUG EXPOSURE DURING PREGNANCY [None]
